FAERS Safety Report 11644933 (Version 2)
Quarter: 2016Q3

REPORT INFORMATION
  Report Type: Spontaneous
  Country: US (occurrence: US)
  Receive Date: 20151020
  Receipt Date: 20160831
  Transmission Date: 20161109
  Serious: Yes (Hospitalization, Other)
  Sender: FDA-Public Use
  Company Number: US-ELI_LILLY_AND_COMPANY-US201510003245

PATIENT
  Age: 47 Year
  Sex: Male
  Weight: 151.93 kg

DRUGS (7)
  1. AXIRON [Suspect]
     Active Substance: TESTOSTERONE
     Indication: BLOOD TESTOSTERONE DECREASED
     Dosage: UNK, UNKNOWN
     Route: 065
     Dates: start: 20130705, end: 20131005
  2. ATORVASTATIN [Concomitant]
     Active Substance: ATORVASTATIN
     Indication: BLOOD CHOLESTEROL INCREASED
     Dosage: UNK, UNKNOWN
     Route: 065
     Dates: start: 2010
  3. TESTOSTERONE CYPIONATE. [Suspect]
     Active Substance: TESTOSTERONE CYPIONATE
     Indication: ANDROGEN REPLACEMENT THERAPY
     Dosage: UNK, MONTHLY (1/M)
     Route: 065
     Dates: start: 20130927, end: 20131027
  4. HYDROCODONE [Concomitant]
     Active Substance: HYDROCODONE
     Indication: PAIN
     Dosage: UNK, UNKNOWN
     Route: 065
     Dates: start: 2009
  5. AMLODIPINE [Concomitant]
     Active Substance: AMLODIPINE BESYLATE
     Indication: BLOOD PRESSURE INCREASED
     Dosage: UNK, UNKNOWN
     Route: 065
     Dates: start: 2004
  6. XARELTO [Concomitant]
     Active Substance: RIVAROXABAN
     Indication: ANTICOAGULANT THERAPY
     Dosage: UNK, UNKNOWN
     Route: 065
     Dates: start: 2012
  7. FENOFIBRATE. [Concomitant]
     Active Substance: FENOFIBRATE
     Indication: BLOOD CHOLESTEROL INCREASED
     Dosage: UNK, UNKNOWN
     Route: 065
     Dates: start: 2010

REACTIONS (1)
  - Pulmonary embolism [Unknown]

NARRATIVE: CASE EVENT DATE: 20131023
